FAERS Safety Report 11335777 (Version 4)
Quarter: 2016Q1

REPORT INFORMATION
  Report Type: Report from Study
  Country: NZ (occurrence: NZ)
  Receive Date: 20150804
  Receipt Date: 20160316
  Transmission Date: 20160525
  Serious: Yes (Other)
  Sender: FDA-Public Use
  Company Number: NZ-ABBVIE-15K-118-1436953-00

PATIENT
  Age: 67 Year
  Sex: Female

DRUGS (3)
  1. HUMIRA [Suspect]
     Active Substance: ADALIMUMAB
     Indication: RHEUMATOID ARTHRITIS
  2. PREDNISONE. [Concomitant]
     Active Substance: PREDNISONE
     Indication: PRODUCT USED FOR UNKNOWN INDICATION
  3. HUMIRA [Suspect]
     Active Substance: ADALIMUMAB
     Indication: PSORIATIC ARTHROPATHY
     Route: 058
     Dates: start: 20141117, end: 20150810

REACTIONS (16)
  - Viral infection [Unknown]
  - Goitre [Unknown]
  - Feeling abnormal [Unknown]
  - Cardiac failure [Unknown]
  - Dysgeusia [Unknown]
  - Rheumatoid arthritis [Unknown]
  - Respiratory disorder [Unknown]
  - Bronchitis [Unknown]
  - Decreased appetite [Unknown]
  - Hyperthyroidism [Unknown]
  - Condition aggravated [Recovered/Resolved]
  - Anxiety [Unknown]
  - Pneumonia [Unknown]
  - Depressed mood [Unknown]
  - Rheumatoid arthritis [Unknown]
  - Pain in extremity [Unknown]

NARRATIVE: CASE EVENT DATE: 201411
